FAERS Safety Report 11480607 (Version 5)
Quarter: 2017Q3

REPORT INFORMATION
  Report Type: Report from Study
  Country: JP (occurrence: JP)
  Receive Date: 20150909
  Receipt Date: 20170829
  Transmission Date: 20171127
  Serious: Yes (Hospitalization, Other)
  Sender: FDA-Public Use
  Company Number: JP-ASTELLAS-2009JP002626

PATIENT
  Age: 43 Year
  Sex: Female
  Weight: 57 kg

DRUGS (83)
  1. PREDONINE [Suspect]
     Active Substance: PREDNISOLONE
     Route: 048
     Dates: start: 20111216, end: 20120404
  2. PREDONINE [Suspect]
     Active Substance: PREDNISOLONE
     Route: 048
     Dates: start: 20120907, end: 20121011
  3. BREDININ [Suspect]
     Active Substance: MIZORIBINE
     Indication: LUPUS NEPHRITIS
     Route: 048
     Dates: end: 20100204
  4. IMURAN [Suspect]
     Active Substance: AZATHIOPRINE
     Route: 048
     Dates: start: 20130718, end: 20140313
  5. IMURAN [Suspect]
     Active Substance: AZATHIOPRINE
     Route: 048
     Dates: start: 20140313, end: 20160211
  6. CELLCEPT [Suspect]
     Active Substance: MYCOPHENOLATE MOFETIL\MYCOPHENOLATE MOFETIL HYDROCHLORIDE
     Indication: LUPUS NEPHRITIS
     Route: 048
     Dates: start: 20160212, end: 20160407
  7. CELLCEPT [Suspect]
     Active Substance: MYCOPHENOLATE MOFETIL\MYCOPHENOLATE MOFETIL HYDROCHLORIDE
     Route: 048
     Dates: start: 20160408, end: 20160519
  8. GLAKAY [Concomitant]
     Active Substance: MENATETRENONE
     Indication: PROPHYLAXIS
     Route: 048
     Dates: end: 20120209
  9. BIOFERMIN [Concomitant]
     Active Substance: BACILLUS SUBTILIS\LACTOBACILLUS ACIDOPHILUS\STREPTOCOCCUS FAECAIS
     Route: 048
  10. ACECOL [Concomitant]
     Active Substance: TEMOCAPRIL HYDROCHLORIDE
     Indication: LUPUS NEPHRITIS
     Route: 048
     Dates: start: 20090423, end: 20090521
  11. MEDICON                            /00048102/ [Concomitant]
     Active Substance: DEXTROMETHORPHAN HYDROBROMIDE
     Indication: PHARYNGITIS
     Route: 048
     Dates: start: 20100406, end: 20100408
  12. LOCOID [Concomitant]
     Active Substance: HYDROCORTISONE BUTYRATE
     Indication: SYSTEMIC LUPUS ERYTHEMATOSUS
     Dosage: UNK, TWICE DAILY
     Route: 061
     Dates: start: 20120524, end: 20120802
  13. MAGMITT [Concomitant]
     Active Substance: MAGNESIUM OXIDE
     Indication: PRODUCT USED FOR UNKNOWN INDICATION
     Dosage: UNK, AS NEEDED
     Route: 048
  14. PL [Concomitant]
     Active Substance: ACETAMINOPHEN\CAFFEINE\PROMETHAZINE\SALICYLAMIDE
     Indication: VIRAL UPPER RESPIRATORY TRACT INFECTION
     Route: 048
     Dates: start: 20130906, end: 20130913
  15. KLARICID                           /00984601/ [Concomitant]
     Active Substance: CLARITHROMYCIN
     Indication: DRUG LEVEL DECREASED
     Route: 048
     Dates: start: 20140104, end: 20140109
  16. LUNESTA [Concomitant]
     Active Substance: ESZOPICLONE
     Indication: PRODUCT USED FOR UNKNOWN INDICATION
     Dosage: UNK UNK, AS NEEDED
     Route: 048
     Dates: start: 20150205
  17. PREDONINE [Suspect]
     Active Substance: PREDNISOLONE
     Route: 048
     Dates: start: 20121012, end: 20130117
  18. PREDONINE [Suspect]
     Active Substance: PREDNISOLONE
     Route: 048
     Dates: start: 20130524
  19. BREDININ [Suspect]
     Active Substance: MIZORIBINE
     Route: 048
     Dates: start: 20100205, end: 20100610
  20. IMURAN [Suspect]
     Active Substance: AZATHIOPRINE
     Indication: LUPUS NEPHRITIS
     Route: 048
     Dates: start: 20120615, end: 20120704
  21. IMURAN [Suspect]
     Active Substance: AZATHIOPRINE
     Route: 048
     Dates: start: 20120705, end: 20130514
  22. IMURAN [Suspect]
     Active Substance: AZATHIOPRINE
     Route: 048
     Dates: start: 20130525, end: 20130717
  23. PREDNISOLONE SODIUM SUCCINATE [Concomitant]
     Active Substance: PREDNISOLONE SODIUM SUCCINATE
     Indication: LUPUS NEPHRITIS
     Route: 065
     Dates: start: 20130517, end: 20130520
  24. HYDROCORTONE                       /00028603/ [Concomitant]
     Active Substance: HYDROCORTISONE SODIUM PHOSPHATE
     Indication: LUPUS NEPHRITIS
     Route: 065
     Dates: start: 20130516, end: 20130516
  25. HOKUNALIN                          /00654901/ [Concomitant]
     Active Substance: TULOBUTEROL
     Indication: ASTHMA
     Route: 062
     Dates: start: 20101019, end: 20101124
  26. ROZEREM [Concomitant]
     Active Substance: RAMELTEON
     Indication: PRODUCT USED FOR UNKNOWN INDICATION
     Route: 048
     Dates: start: 20120405, end: 20120414
  27. EDIROL [Concomitant]
     Active Substance: ELDECALCITOL
     Indication: PROPHYLAXIS
     Dosage: 0.75 ?G, ONCE DAILY
     Route: 048
     Dates: start: 20120405, end: 20140807
  28. ANTEBATE [Concomitant]
     Active Substance: BETAMETHASONE DIPROPIONATE
     Indication: SYSTEMIC LUPUS ERYTHEMATOSUS
     Dosage: UNK, TWICE DAILY
     Route: 061
     Dates: start: 20120524, end: 20120802
  29. TACROLIMUS. [Suspect]
     Active Substance: TACROLIMUS
     Indication: LUPUS NEPHRITIS
     Route: 048
     Dates: start: 20070807, end: 20070905
  30. DIOVAN [Suspect]
     Active Substance: VALSARTAN
     Indication: LUPUS NEPHRITIS
     Route: 048
     Dates: start: 20090618, end: 20090619
  31. BAKTAR [Suspect]
     Active Substance: SULFAMETHOXAZOLE\TRIMETHOPRIM
     Indication: PNEUMOCYSTIS JIROVECII PNEUMONIA
     Route: 048
     Dates: start: 20131018, end: 20131114
  32. ERYTHROCIN                         /00020901/ [Suspect]
     Active Substance: ERYTHROMYCIN ETHYLSUCCINATE
     Indication: DRUG LEVEL DECREASED
     Route: 048
     Dates: start: 20140314, end: 20140410
  33. ERYTHROCIN                         /00020901/ [Suspect]
     Active Substance: ERYTHROMYCIN ETHYLSUCCINATE
     Route: 048
     Dates: start: 20140411, end: 20140612
  34. CELLCEPT [Suspect]
     Active Substance: MYCOPHENOLATE MOFETIL\MYCOPHENOLATE MOFETIL HYDROCHLORIDE
     Route: 048
     Dates: start: 20160715, end: 20160728
  35. ZITHROMAC [Concomitant]
     Active Substance: AZITHROMYCIN DIHYDRATE
     Indication: PHARYNGITIS
     Route: 048
     Dates: start: 20100406, end: 20100408
  36. TACROLIMUS. [Suspect]
     Active Substance: TACROLIMUS
     Route: 048
     Dates: start: 20130525
  37. PREDONINE [Suspect]
     Active Substance: PREDNISOLONE
     Route: 048
     Dates: start: 20130521, end: 20130523
  38. BREDININ [Suspect]
     Active Substance: MIZORIBINE
     Route: 048
     Dates: start: 20100611, end: 20100901
  39. ONEALFA [Concomitant]
     Active Substance: ALFACALCIDOL
     Indication: PROPHYLAXIS
     Route: 048
     Dates: end: 20120404
  40. MAGNESIUM OXIDE. [Concomitant]
     Active Substance: MAGNESIUM OXIDE
     Indication: PRODUCT USED FOR UNKNOWN INDICATION
     Route: 048
  41. METHYCOBAL [Concomitant]
     Active Substance: METHYLCOBALAMIN
     Indication: SCIATICA
     Route: 048
     Dates: start: 20080705, end: 20090528
  42. CALNATE [Concomitant]
     Indication: LUPUS NEPHRITIS
     Route: 048
     Dates: start: 20090623
  43. LOXONIN [Concomitant]
     Active Substance: LOXOPROFEN SODIUM
     Indication: BACK PAIN
     Route: 048
     Dates: start: 20110727, end: 20110802
  44. DERMOVATE [Concomitant]
     Active Substance: CLOBETASOL
     Indication: SYSTEMIC LUPUS ERYTHEMATOSUS
     Dosage: UNK, TWICE DAILY
     Route: 061
     Dates: start: 20120524, end: 20120802
  45. PL [Concomitant]
     Active Substance: ACETAMINOPHEN\CAFFEINE\PROMETHAZINE\SALICYLAMIDE
     Indication: ASTHMA
     Dosage: UNK UNK, UNKNOWN FREQ.
     Route: 048
  46. ALFAROL [Concomitant]
     Active Substance: ALFACALCIDOL
     Indication: PROPHYLAXIS
     Dosage: 0.5 ?G, ONCE DAILY
     Route: 048
     Dates: start: 20140808
  47. TACROLIMUS. [Suspect]
     Active Substance: TACROLIMUS
     Route: 048
     Dates: start: 20070906, end: 20130515
  48. PREDONINE [Suspect]
     Active Substance: PREDNISOLONE
     Route: 048
     Dates: start: 20100814, end: 20111215
  49. PREDONINE [Suspect]
     Active Substance: PREDNISOLONE
     Route: 048
     Dates: start: 20120621, end: 20120704
  50. BAKTAR [Suspect]
     Active Substance: SULFAMETHOXAZOLE\TRIMETHOPRIM
     Route: 048
     Dates: start: 20131213
  51. ERYTHROCIN                         /00020901/ [Suspect]
     Active Substance: ERYTHROMYCIN ETHYLSUCCINATE
     Route: 048
     Dates: start: 20150409, end: 20160421
  52. BIOFERMIN [Concomitant]
     Active Substance: BACILLUS SUBTILIS\LACTOBACILLUS ACIDOPHILUS\STREPTOCOCCUS FAECAIS
     Indication: PRODUCT USED FOR UNKNOWN INDICATION
     Route: 048
     Dates: start: 20080703
  53. SELTOUCH [Concomitant]
     Active Substance: FELBINAC
     Dosage: UNK, AS NEEDED
     Route: 061
     Dates: start: 20121114, end: 20130919
  54. HOKUNALIN                          /00654901/ [Concomitant]
     Active Substance: TULOBUTEROL
     Dosage: UNK, UNKNOWN FREQ.
     Route: 062
  55. MEPTIN [Concomitant]
     Active Substance: PROCATEROL HYDROCHLORIDE
     Indication: ASTHMA
     Dosage: UNK, AS NEEDED
     Route: 055
     Dates: start: 20101019, end: 20101124
  56. ALESION [Concomitant]
     Active Substance: EPINASTINE HYDROCHLORIDE
     Indication: SYSTEMIC LUPUS ERYTHEMATOSUS
     Route: 048
     Dates: start: 20120405, end: 20120524
  57. SHAKUYAKUKANZOTO [Concomitant]
     Active Substance: HERBALS
     Indication: MUSCLE SPASMS
     Route: 048
     Dates: start: 20140612
  58. PREDONINE [Suspect]
     Active Substance: PREDNISOLONE
     Route: 048
     Dates: start: 20120405, end: 20120527
  59. PREDONINE [Suspect]
     Active Substance: PREDNISOLONE
     Route: 048
     Dates: start: 20120528, end: 20120620
  60. PREDONINE [Suspect]
     Active Substance: PREDNISOLONE
     Route: 048
     Dates: start: 20120705, end: 20120801
  61. PREDONINE [Suspect]
     Active Substance: PREDNISOLONE
     Route: 048
     Dates: start: 20120802, end: 20120906
  62. BAYASPIRIN [Suspect]
     Active Substance: ASPIRIN
     Indication: PROPHYLAXIS
     Route: 048
  63. BREDININ [Suspect]
     Active Substance: MIZORIBINE
     Route: 048
     Dates: start: 20100902, end: 20120614
  64. ACECOL [Concomitant]
     Active Substance: TEMOCAPRIL HYDROCHLORIDE
     Route: 048
     Dates: start: 20090522, end: 20090618
  65. CALNATE [Concomitant]
     Route: 048
     Dates: end: 20160729
  66. KLARICID                           /00984601/ [Concomitant]
     Active Substance: CLARITHROMYCIN
     Route: 048
     Dates: start: 20140110, end: 20140313
  67. PREDONINE [Suspect]
     Active Substance: PREDNISOLONE
     Indication: LUPUS NEPHRITIS
     Route: 048
     Dates: end: 20080910
  68. PREDONINE [Suspect]
     Active Substance: PREDNISOLONE
     Route: 048
     Dates: start: 20080911, end: 20100813
  69. CELLCEPT [Suspect]
     Active Substance: MYCOPHENOLATE MOFETIL\MYCOPHENOLATE MOFETIL HYDROCHLORIDE
     Route: 048
     Dates: start: 20160520, end: 20160714
  70. ACINON [Concomitant]
     Active Substance: NIZATIDINE
     Indication: PROPHYLAXIS
     Route: 048
  71. LIPITOR [Concomitant]
     Active Substance: ATORVASTATIN CALCIUM
     Indication: HYPERCHOLESTEROLAEMIA
     Route: 048
     Dates: start: 20081120, end: 20090617
  72. LOXONIN [Concomitant]
     Active Substance: LOXOPROFEN SODIUM
     Dosage: UNK, AS NEEDED
     Route: 048
     Dates: start: 20121114
  73. ULGUT                              /00963802/ [Concomitant]
     Indication: PROPHYLAXIS
     Route: 048
     Dates: start: 20110727, end: 20110802
  74. SUMILU [Concomitant]
     Active Substance: FELBINAC
     Indication: PRODUCT USED FOR UNKNOWN INDICATION
     Dosage: UNK, AS NEEDED
     Route: 061
     Dates: start: 20120314
  75. RINDERON DP [Concomitant]
     Indication: SYSTEMIC LUPUS ERYTHEMATOSUS
     Dosage: UNK, AS NEEDED
     Route: 061
     Dates: start: 20120628
  76. PREDONINE [Suspect]
     Active Substance: PREDNISOLONE
     Route: 048
     Dates: start: 20130118, end: 20130515
  77. BLOPRESS [Suspect]
     Active Substance: CANDESARTAN CILEXETIL
     Indication: LUPUS NEPHRITIS
     Route: 048
     Dates: start: 20081120, end: 20090326
  78. BAKTAR [Suspect]
     Active Substance: SULFAMETHOXAZOLE\TRIMETHOPRIM
     Route: 048
     Dates: start: 20131115, end: 20131212
  79. MYSLEE [Concomitant]
     Active Substance: ZOLPIDEM TARTRATE
     Indication: INSOMNIA
     Route: 048
     Dates: end: 20150204
  80. SELTOUCH [Concomitant]
     Active Substance: FELBINAC
     Indication: PRODUCT USED FOR UNKNOWN INDICATION
     Dosage: UNK, AS NEEDED
     Route: 061
     Dates: end: 20080801
  81. PERSANTINE [Concomitant]
     Active Substance: DIPYRIDAMOLE
     Indication: LUPUS NEPHRITIS
     Route: 048
     Dates: start: 20090813, end: 20160730
  82. RECALBON [Concomitant]
     Active Substance: MINODRONIC ACID
     Indication: PROPHYLAXIS
     Route: 048
     Dates: start: 20121115
  83. DEPAS [Concomitant]
     Active Substance: ETIZOLAM
     Indication: NEUROSIS
     Dosage: UNK, AS NEEDED
     Route: 048
     Dates: start: 20140109

REACTIONS (18)
  - Anaemia macrocytic [Recovered/Resolved]
  - Neurosis [Recovering/Resolving]
  - Hypercholesterolaemia [Recovering/Resolving]
  - Pharyngitis [Recovered/Resolved]
  - Asthma [Recovered/Resolved]
  - Renal impairment [Not Recovered/Not Resolved]
  - Anaemia [Recovered/Resolved]
  - Nausea [Recovered/Resolved]
  - Nasopharyngitis [Recovered/Resolved]
  - Systemic lupus erythematosus [Recovered/Resolved]
  - Nausea [Recovered/Resolved]
  - Colitis ischaemic [Recovered/Resolved]
  - Muscle spasms [Recovering/Resolving]
  - Back pain [Recovered/Resolved]
  - Diarrhoea [Recovered/Resolved]
  - Enterocolitis viral [Recovered/Resolved]
  - Sciatica [Recovering/Resolving]
  - Dizziness [Recovered/Resolved]

NARRATIVE: CASE EVENT DATE: 200807
